FAERS Safety Report 8376759-8 (Version None)
Quarter: 2012Q2

REPORT INFORMATION
  Report Type: 
  Country: None (occurrence: None)
  Receive Date: 20120522
  Receipt Date: 20120223
  Transmission Date: 20120825
  Serious: No
  Sender: FDA-Public Use
  Company Number: US-BRISTOL-MYERS SQUIBB COMPANY-16349755

PATIENT
  Age: 80 Year
  Sex: Male
  Weight: 63 kg

DRUGS (1)
  1. ONGLYZA [Suspect]
     Dosage: SAMPLE PACKS STARTED: 4 OR 5 WEEKS AGO

REACTIONS (1)
  - DRUG INEFFECTIVE [None]
